FAERS Safety Report 24460047 (Version 1)
Quarter: 2024Q4

REPORT INFORMATION
  Report Type: Spontaneous
  Country: JP (occurrence: JP)
  Receive Date: 20241018
  Receipt Date: 20241018
  Transmission Date: 20250114
  Serious: No
  Sender: ROCHE
  Company Number: JP-ROCHE-3558562

PATIENT
  Sex: Male

DRUGS (7)
  1. RITUXIMAB [Suspect]
     Active Substance: RITUXIMAB
     Indication: Wiskott-Aldrich syndrome
     Route: 042
  2. PREDNISOLONE [Concomitant]
     Active Substance: PREDNISOLONE
  3. CYCLOSPORINE [Concomitant]
     Active Substance: CYCLOSPORINE
  4. TOCILIZUMAB [Concomitant]
     Active Substance: TOCILIZUMAB
     Route: 065
  5. METHOTREXATE [Concomitant]
     Active Substance: METHOTREXATE
  6. FLUDARABINE [Concomitant]
     Active Substance: FLUDARABINE PHOSPHATE
     Dosage: ON DAY -10 TO -7 (7 DAYS BEFORE TRANSPLANT)
  7. BUSULFAN [Concomitant]
     Active Substance: BUSULFAN
     Dosage: DOSES ADJUSTED BY A CUMULATIVE AUC OF 60 TO 65 MG/L X H, FOUR TIMES A DAY X 4 DAYS, DAYS -6 TO -3

REACTIONS (1)
  - Infusion related reaction [Unknown]
